FAERS Safety Report 12489361 (Version 2)
Quarter: 2016Q2

REPORT INFORMATION
  Report Type: Spontaneous
  Country: US (occurrence: US)
  Receive Date: 20160622
  Receipt Date: 20160623
  Transmission Date: 20160815
  Serious: No
  Sender: FDA-Public Use
  Company Number: US-ASTRAZENECA-2016SE55129

PATIENT
  Age: 23 Year
  Sex: Male
  Weight: 76.2 kg

DRUGS (8)
  1. SEROQUEL [Suspect]
     Active Substance: QUETIAPINE FUMARATE
     Indication: PSYCHOTIC DISORDER
     Dosage: AT NIGHT
     Route: 048
     Dates: start: 2005
  2. LITHIUM. [Concomitant]
     Active Substance: LITHIUM
     Route: 065
  3. SEROQUEL [Suspect]
     Active Substance: QUETIAPINE FUMARATE
     Indication: PSYCHOTIC DISORDER
     Dosage: GENERIC
     Route: 048
  4. SEROQUEL [Suspect]
     Active Substance: QUETIAPINE FUMARATE
     Indication: BIPOLAR DISORDER
     Dosage: AT NIGHT
     Route: 048
     Dates: start: 2005
  5. SEROQUEL [Suspect]
     Active Substance: QUETIAPINE FUMARATE
     Indication: ANXIETY
     Dosage: AT NIGHT
     Route: 048
     Dates: start: 2005
  6. NEURONTIN [Concomitant]
     Active Substance: GABAPENTIN
     Dosage: UNKNOWN
     Route: 065
  7. SEROQUEL [Suspect]
     Active Substance: QUETIAPINE FUMARATE
     Indication: BIPOLAR DISORDER
     Dosage: GENERIC
     Route: 048
  8. SEROQUEL [Suspect]
     Active Substance: QUETIAPINE FUMARATE
     Indication: ANXIETY
     Dosage: GENERIC
     Route: 048

REACTIONS (7)
  - Erythema [Unknown]
  - Weight increased [Unknown]
  - Drug dependence [Unknown]
  - Attention deficit/hyperactivity disorder [Unknown]
  - Flushing [Unknown]
  - Bipolar I disorder [Unknown]
  - Off label use [Unknown]

NARRATIVE: CASE EVENT DATE: 2007
